FAERS Safety Report 24986973 (Version 1)
Quarter: 2025Q1

REPORT INFORMATION
  Report Type: Spontaneous
  Country: ES (occurrence: ES)
  Receive Date: 20250219
  Receipt Date: 20250219
  Transmission Date: 20250408
  Serious: Yes (Other)
  Sender: GRANULES PHARMACEUTICALS INC
  Company Number: ES-GRANULES-ES-2025GRALIT00057

PATIENT
  Age: 9 Year
  Sex: Male

DRUGS (5)
  1. IBUPROFEN [Suspect]
     Active Substance: IBUPROFEN
     Indication: Ear infection
     Route: 048
     Dates: start: 202308
  2. IBUPROFEN [Suspect]
     Active Substance: IBUPROFEN
     Route: 048
     Dates: start: 202403
  3. METAMIZOLE [Suspect]
     Active Substance: METAMIZOLE
     Indication: Product used for unknown indication
     Route: 048
     Dates: start: 202310
  4. ASPIRIN [Suspect]
     Active Substance: ASPIRIN
     Indication: Product used for unknown indication
     Route: 065
  5. EPINEPHRINE [Concomitant]
     Active Substance: EPINEPHRINE
     Indication: Product used for unknown indication
     Route: 030

REACTIONS (2)
  - Enterocolitis [Unknown]
  - Product use in unapproved indication [Unknown]
